FAERS Safety Report 21842175 (Version 1)
Quarter: 2023Q1

REPORT INFORMATION
  Report Type: Spontaneous
  Country: US (occurrence: None)
  Receive Date: 20230109
  Receipt Date: 20230109
  Transmission Date: 20230418
  Serious: No
  Sender: FDA-Public Use
  Company Number: None

PATIENT
  Age: 37 Year
  Sex: Female
  Weight: 92.25 kg

DRUGS (1)
  1. XEMBIFY [Suspect]
     Active Substance: HUMAN IMMUNOGLOBULIN G
     Dosage: FREQUENCY : WEEKLY;?
     Route: 058

REACTIONS (5)
  - Injection site urticaria [None]
  - Injection site discharge [None]
  - Injection site rash [None]
  - Injection site pruritus [None]
  - Injection site irritation [None]

NARRATIVE: CASE EVENT DATE: 20230106
